FAERS Safety Report 25810161 (Version 1)
Quarter: 2025Q3

REPORT INFORMATION
  Report Type: Report from Study
  Country: US (occurrence: US)
  Receive Date: 20250917
  Receipt Date: 20250917
  Transmission Date: 20251021
  Serious: Yes (Hospitalization, Other)
  Sender: ACADIA PHARMACEUTICALS
  Company Number: US-ACADIA PHARMACEUTICALS INC.-ACA-2025-PIM-010225

PATIENT
  Age: 69 Year
  Sex: Male

DRUGS (18)
  1. NUPLAZID [Suspect]
     Active Substance: PIMAVANSERIN TARTRATE
     Indication: Mental disorder
     Dosage: 34 MILLIGRAM, QD
     Route: 048
  2. NUPLAZID [Suspect]
     Active Substance: PIMAVANSERIN TARTRATE
     Indication: Delusion
  3. OMEPRAZOLE [Concomitant]
     Active Substance: OMEPRAZOLE
  4. KETOCONAZOLE [Concomitant]
     Active Substance: KETOCONAZOLE
  5. SEROQUEL [Concomitant]
     Active Substance: QUETIAPINE FUMARATE
  6. PROZAC [Concomitant]
     Active Substance: FLUOXETINE HYDROCHLORIDE
  7. SUBOXONE [Concomitant]
     Active Substance: BUPRENORPHINE HYDROCHLORIDE\NALOXONE HYDROCHLORIDE
  8. HYDROCHLOROTHIAZIDE [Concomitant]
     Active Substance: HYDROCHLOROTHIAZIDE
  9. HYDROCHLOROTHIAZIDE\LOSARTAN [Concomitant]
     Active Substance: HYDROCHLOROTHIAZIDE\LOSARTAN
  10. TESTOSTERONE CYPIONATE [Concomitant]
     Active Substance: TESTOSTERONE CYPIONATE
  11. LEVOTHYROXINE SODIUM [Concomitant]
     Active Substance: LEVOTHYROXINE SODIUM
  12. HYDROCORTISONE [Concomitant]
     Active Substance: HYDROCORTISONE
  13. CICLOPIROX [Concomitant]
     Active Substance: CICLOPIROX
  14. CALCIUM CHLORIDE [Concomitant]
     Active Substance: CALCIUM CHLORIDE
  15. ADDERALL [Concomitant]
     Active Substance: AMPHETAMINE ASPARTATE\AMPHETAMINE SULFATE\DEXTROAMPHETAMINE SACCHARATE\DEXTROAMPHETAMINE SULFATE
  16. AMLODIPINE BESYLATE\BENAZEPRIL HYDROCHLORIDE [Concomitant]
     Active Substance: AMLODIPINE BESYLATE\BENAZEPRIL HYDROCHLORIDE
  17. ARICEPT [Concomitant]
     Active Substance: DONEPEZIL HYDROCHLORIDE
  18. SULFACETAMIDE SODIUM\SULFUR [Concomitant]
     Active Substance: SULFACETAMIDE SODIUM\SULFUR

REACTIONS (7)
  - Gastrointestinal haemorrhage [Not Recovered/Not Resolved]
  - Aortic aneurysm rupture [Not Recovered/Not Resolved]
  - Aortic aneurysm repair [Not Recovered/Not Resolved]
  - Speech disorder [Not Recovered/Not Resolved]
  - Loss of personal independence in daily activities [Not Recovered/Not Resolved]
  - Gait inability [Not Recovered/Not Resolved]
  - Product use in unapproved indication [Not Recovered/Not Resolved]

NARRATIVE: CASE EVENT DATE: 20250601
